FAERS Safety Report 6399263-5 (Version None)
Quarter: 2009Q4

REPORT INFORMATION
  Report Type: 
  Country: None (occurrence: None)
  Receive Date: 20091014
  Receipt Date: 20071119
  Transmission Date: 20100525
  Serious: Yes (Other)
  Sender: FDA-Public Use
  Company Number: US-ASTRAZENECA-2006UW27957

PATIENT
  Age: 15863 Day
  Sex: Female
  Weight: 101.6 kg

DRUGS (22)
  1. SEROQUEL [Suspect]
     Indication: DEPRESSION
     Dosage: STRENGTH - 25 - 800 MG
     Route: 048
     Dates: start: 20010102
  2. SEROQUEL [Suspect]
     Indication: POST-TRAUMATIC STRESS DISORDER
     Dosage: STRENGTH - 25 - 800 MG
     Route: 048
     Dates: start: 20010102
  3. SEROQUEL [Suspect]
     Indication: ANXIETY
     Dosage: STRENGTH - 25 - 800 MG
     Route: 048
     Dates: start: 20010102
  4. SEROQUEL [Suspect]
     Route: 048
  5. SEROQUEL [Suspect]
     Route: 048
  6. SEROQUEL [Suspect]
     Route: 048
  7. ABILIFY [Concomitant]
  8. ZYPREXA [Concomitant]
  9. LEXAPRO [Concomitant]
  10. ALPRAZOLAM [Concomitant]
     Dosage: STRENGTH - 0.5 MG AND 1 MG, DOSE - 5 MG DAILY
     Dates: start: 20001030
  11. ESTRADIOL [Concomitant]
     Dates: start: 19990924
  12. PROPRANOLOL [Concomitant]
     Indication: MIGRAINE
     Dosage: STRENGTH - 80 MG, DOSE - 80 - 240 MG
     Dates: start: 20000405
  13. SYNTHROID [Concomitant]
     Dosage: STRENGTH - 0.1 - 175 MCG
     Dates: start: 19990924
  14. LIPITOR [Concomitant]
     Dosage: STRENGTH - 20 - 80 MG
     Dates: start: 19990924
  15. NITROSTAT [Concomitant]
     Indication: CHEST PAIN
     Dosage: STRENGTH - 4 MG AS REQUIRED
     Dates: start: 19990924
  16. EFFEXOR XR [Concomitant]
     Dates: start: 20020613
  17. WELLBUTRIN [Concomitant]
     Dates: start: 20020613
  18. COMBIVENT [Concomitant]
     Indication: BRONCHIAL HYPERREACTIVITY
     Dosage: 2 PUFFS FOUR TIMES A DAY
     Dates: start: 20020613
  19. ETODOLAC [Concomitant]
     Dosage: STRENGTH - 500 MG TWO TIMES A DAY AS REQUIRED
     Dates: start: 20030822
  20. ZOCOR [Concomitant]
     Indication: LIPIDS
     Dates: start: 20030822
  21. DICYCLOMINE [Concomitant]
     Dates: start: 20030822
  22. GEODON [Concomitant]
     Dosage: STRENGTH - 240 MG DAILY
     Dates: start: 20030822

REACTIONS (5)
  - DIABETES MELLITUS [None]
  - DIABETIC EYE DISEASE [None]
  - DIABETIC FOOT [None]
  - DIABETIC NEUROPATHY [None]
  - TYPE 2 DIABETES MELLITUS [None]
